FAERS Safety Report 11022019 (Version 1)
Quarter: 2015Q2

REPORT INFORMATION
  Report Type: Spontaneous
  Country: US (occurrence: US)
  Receive Date: 20150413
  Receipt Date: 20150413
  Transmission Date: 20150821
  Serious: No
  Sender: FDA-Public Use
  Company Number: US-ASTRAZENECA-2015SE32266

PATIENT
  Sex: Female

DRUGS (2)
  1. METOPROLOL TARTARATE [Suspect]
     Active Substance: METOPROLOL TARTRATE
     Dosage: GENERIC
     Route: 065
  2. TOPROL XL [Suspect]
     Active Substance: METOPROLOL SUCCINATE
     Route: 048

REACTIONS (2)
  - Fear [Unknown]
  - Intentional product misuse [Unknown]
